FAERS Safety Report 25511764 (Version 1)
Quarter: 2025Q3

REPORT INFORMATION
  Report Type: Spontaneous
  Country: US (occurrence: US)
  Receive Date: 20250703
  Receipt Date: 20250703
  Transmission Date: 20251020
  Serious: No
  Sender: TEVA
  Company Number: US-TEVA-VS-3344916

PATIENT
  Age: 74 Year
  Sex: Male

DRUGS (1)
  1. TERIPARATIDE [Suspect]
     Active Substance: TERIPARATIDE
     Indication: Product used for unknown indication
     Route: 058
     Dates: start: 2025

REACTIONS (6)
  - Injection site bruising [Unknown]
  - Injection site inflammation [Recovered/Resolved]
  - Fatigue [Unknown]
  - Product temperature excursion issue [Unknown]
  - Injection site erythema [Unknown]
  - Poor quality product administered [Unknown]

NARRATIVE: CASE EVENT DATE: 20250101
